FAERS Safety Report 8790718 (Version 1)
Quarter: 2012Q4

REPORT INFORMATION
  Report Type: Spontaneous
  Country: US (occurrence: None)
  Receive Date: 20120913
  Receipt Date: 20120913
  Transmission Date: 20130627
  Serious: Yes (Disabling, Other)
  Sender: FDA-Public Use
  Company Number: None

PATIENT
  Sex: Male
  Weight: 73.2 kg

DRUGS (5)
  1. CIPROFLOXACIN [Suspect]
     Dosage: 500 MG X1 TABLET BY MOUTH TWICE DAILY
     Route: 048
     Dates: start: 20100813, end: 20100911
  2. CIPROFLOXACIN [Suspect]
     Dosage: 500 MG X1 TABLET BY MOUTH TWICE DAILY
     Route: 048
     Dates: start: 20100813, end: 20100911
  3. LEVAQUIN [Suspect]
     Dosage: 500 MG X1 TABLET BY MOUTH ONCE DAILY
     Route: 048
     Dates: start: 20110118, end: 20110124
  4. LEVAQUIN [Suspect]
     Dosage: 500 MG X1 TABLET BY MOUTH ONCE DAILY
     Route: 048
     Dates: start: 20110118, end: 20110124
  5. AVODART [Concomitant]

REACTIONS (45)
  - Abdominal pain [None]
  - Abdominal tenderness [None]
  - Diarrhoea [None]
  - Urticaria [None]
  - Urticaria [None]
  - Rash [None]
  - Pruritus [None]
  - Hypohidrosis [None]
  - Feeling jittery [None]
  - Cardiac flutter [None]
  - Extrasystoles [None]
  - Photophobia [None]
  - Pain [None]
  - Headache [None]
  - Throat irritation [None]
  - Chest pain [None]
  - Cough [None]
  - Chest discomfort [None]
  - Heart rate abnormal [None]
  - Dizziness [None]
  - Nausea [None]
  - Balance disorder [None]
  - Disturbance in attention [None]
  - Back pain [None]
  - Musculoskeletal chest pain [None]
  - Anxiety [None]
  - Feeling of despair [None]
  - Muscular weakness [None]
  - Muscle atrophy [None]
  - Fatigue [None]
  - Fatigue [None]
  - Tendon pain [None]
  - Peroneal nerve palsy [None]
  - Arthralgia [None]
  - Pelvic pain [None]
  - Joint lock [None]
  - Arthritis [None]
  - Ear discomfort [None]
  - Tinnitus [None]
  - Eye pain [None]
  - Migraine [None]
  - Decreased appetite [None]
  - Weight decreased [None]
  - Quality of life decreased [None]
  - Skin odour abnormal [None]
